FAERS Safety Report 5830713-6 (Version None)
Quarter: 2008Q3

REPORT INFORMATION
  Report Type: 
  Country: None (occurrence: None)
  Receive Date: 20080801
  Receipt Date: 20061213
  Transmission Date: 20090109
  Serious: Yes (Other)
  Sender: FDA-Public Use
  Company Number: US-BRISTOL-MYERS SQUIBB COMPANY-13947106

PATIENT
  Sex: Female

DRUGS (9)
  1. PRINIVIL [Suspect]
     Indication: HYPERTENSION
     Route: 048
  2. PRINIVIL [Suspect]
     Indication: TYPE 2 DIABETES MELLITUS
     Route: 048
  3. COUMADIN [Suspect]
     Indication: ATRIAL FIBRILLATION
     Dosage: 1 DOSAGE FORM = 1.5 TABLET
     Route: 048
  4. BETOPTIC [Concomitant]
  5. CLARITIN [Concomitant]
  6. GLUCOVANCE [Concomitant]
  7. LASIX [Concomitant]
  8. TOPROL-XL [Concomitant]
  9. POTASSIUM CHLORIDE [Concomitant]

REACTIONS (1)
  - RASH [None]
